FAERS Safety Report 5852726-0 (Version None)
Quarter: 2008Q3

REPORT INFORMATION
  Report Type: 
  Country: None (occurrence: None)
  Receive Date: 20080819
  Receipt Date: 20080808
  Transmission Date: 20090109
  Serious: Yes (Death)
  Sender: FDA-Public Use
  Company Number: 003929

PATIENT
  Age: 56 Year
  Sex: Female

DRUGS (2)
  1. BUSULFEX [Suspect]
     Indication: STEM CELL TRANSPLANT
     Dosage: 3.2 MG, INTRAVENOUS
     Route: 042
     Dates: start: 20080331, end: 20080403
  2. CYCLOPHOSPHAMIDE [Concomitant]

REACTIONS (4)
  - CONDITION AGGRAVATED [None]
  - STEM CELL TRANSPLANT [None]
  - T-CELL LYMPHOMA [None]
  - VENOOCCLUSIVE LIVER DISEASE [None]
